FAERS Safety Report 11441711 (Version 1)
Quarter: 2015Q3

REPORT INFORMATION
  Report Type: Spontaneous
  Country: BR (occurrence: BR)
  Receive Date: 20150901
  Receipt Date: 20150901
  Transmission Date: 20151125
  Serious: Yes (Death, Other)
  Sender: FDA-Public Use
  Company Number: BR-PFIZER INC-2015286470

PATIENT
  Age: 13 Month

DRUGS (1)
  1. ZITHROMAX [Suspect]
     Active Substance: AZITHROMYCIN DIHYDRATE
     Dosage: 10 MG/KG, UNK
     Dates: start: 2008

REACTIONS (2)
  - Drug administered to patient of inappropriate age [Fatal]
  - Death [Fatal]
